FAERS Safety Report 8097146-6 (Version None)
Quarter: 2012Q1

REPORT INFORMATION
  Report Type: 
  Country: None (occurrence: None)
  Receive Date: 20120128
  Receipt Date: 20110706
  Transmission Date: 20120608
  Serious: No
  Sender: FDA-Public Use
  Company Number: US-ABBOTT-11P-163-0836674-00

PATIENT
  Age: 53 Year
  Sex: Male

DRUGS (13)
  1. HUMIRA [Suspect]
     Indication: CROHN'S DISEASE
     Dates: start: 20080501
  2. AZATHIOPRINE [Concomitant]
     Indication: IMMUNOSUPPRESSANT DRUG THERAPY
  3. NATURE MADE IRON [Concomitant]
     Indication: PRODUCT USED FOR UNKNOWN INDICATION
  4. NATURE MALE MULTI VIT [Concomitant]
     Indication: VITAMIN SUPPLEMENTATION
  5. ZOLPIDEM [Concomitant]
     Indication: INSOMNIA
  6. CHLORPHENIRAMINE MALEATE [Concomitant]
     Indication: SEASONAL ALLERGY
     Dosage: DAILY
  7. SIMETHICONE [Concomitant]
     Indication: FLATULENCE
     Dosage: 1-2 TABS DAILY
  8. EXTRA STRENGTH TYLENOL [Concomitant]
     Indication: ARTHRALGIA
     Dosage: 1-2 DAILY
  9. AMLODIPINE [Concomitant]
     Indication: HYPERTENSION
  10. TRIAMTERENE AND HYDROCHLOROTHIAZIDE [Concomitant]
     Indication: OEDEMA
     Dosage: 37.5/25MG
  11. SPRING VALLEY CALCIUM PLUS VIT D [Concomitant]
     Indication: PRODUCT USED FOR UNKNOWN INDICATION
     Dosage: 1.2GM/800MG
  12. OMEPRAZOLE [Concomitant]
     Indication: GASTROOESOPHAGEAL REFLUX DISEASE
  13. CETIRIZINE HCL [Concomitant]
     Indication: SEASONAL ALLERGY
     Dosage: DAILY

REACTIONS (6)
  - ARTHRITIS [None]
  - ARTHRALGIA [None]
  - ABDOMINAL DISTENSION [None]
  - DECREASED APPETITE [None]
  - DIARRHOEA [None]
  - PYREXIA [None]
